FAERS Safety Report 12002900 (Version 5)
Quarter: 2016Q3

REPORT INFORMATION
  Report Type: Report from Study
  Country: BR (occurrence: BR)
  Receive Date: 20160204
  Receipt Date: 20160917
  Transmission Date: 20161109
  Serious: Yes (Other)
  Sender: FDA-Public Use
  Company Number: PHHY2016BR014523

PATIENT
  Sex: Male
  Weight: 83 kg

DRUGS (2)
  1. EXJADE [Suspect]
     Active Substance: DEFERASIROX
     Dosage: 1500 MG (3 DF), QD
     Route: 065
  2. EXJADE [Suspect]
     Active Substance: DEFERASIROX
     Indication: THALASSAEMIA BETA
     Dosage: 1 DF (5 MG/KG), QD
     Route: 048
     Dates: start: 2015

REACTIONS (11)
  - Diarrhoea [Unknown]
  - Gait disturbance [Unknown]
  - Wound [Unknown]
  - Impaired healing [Unknown]
  - Procedural complication [Unknown]
  - Abdominal pain [Unknown]
  - Skin discolouration [Unknown]
  - Diarrhoea [Recovered/Resolved]
  - Retching [Unknown]
  - Pain in extremity [Unknown]
  - Venous haemorrhage [Unknown]
